FAERS Safety Report 23263544 (Version 2)
Quarter: 2024Q2

REPORT INFORMATION
  Report Type: Spontaneous
  Country: US (occurrence: US)
  Receive Date: 20231205
  Receipt Date: 20240411
  Transmission Date: 20240716
  Serious: Yes (Hospitalization, Other)
  Sender: FDA-Public Use
  Company Number: US-PFIZER INC-PV202300195530

PATIENT
  Age: 90 Year
  Sex: Female

DRUGS (31)
  1. VYNDAMAX [Suspect]
     Active Substance: TAFAMIDIS
     Indication: Amyloidosis
     Dosage: ONE 61 MG CAPSULE 1X PER DAY
     Route: 048
     Dates: start: 2021
  2. VYNDAMAX [Suspect]
     Active Substance: TAFAMIDIS
     Indication: Cardiac amyloidosis
  3. VYNDAMAX [Suspect]
     Active Substance: TAFAMIDIS
     Indication: Cardiovascular disorder
  4. ALIGN [Concomitant]
     Active Substance: BIFIDOBACTERIUM LONGUM SUBSP. INFANTIS
     Indication: Prophylaxis
     Dosage: GIVE 1 CAPSULE BY MOUTH TWO TIMES A DAY FOR PROPHYLAXIS FOR 14 DAYS
     Route: 048
  5. ASCORBIC ACID [Concomitant]
     Active Substance: ASCORBIC ACID
     Indication: Vitamin supplementation
     Dosage: GIVE 1 TABLET BY MOUTH ONE TIME A DAY FOR VITAMIN SUPPLEMENTATION
     Route: 048
  6. ASCORBIC ACID [Concomitant]
     Active Substance: ASCORBIC ACID
     Dosage: ORAL WAFER 500 MG (ASCORBIC ACID): GIVE 1 WAFER BY MOUTH ONE TIME A DAY FOR VITAMIN
     Route: 048
  7. ASPIRIN [Concomitant]
     Active Substance: ASPIRIN
     Indication: Anticoagulant therapy
     Dosage: GIVE 1 TABLET BY MOUTH ONE TIME A DAY FOR HEART HEALTHY
     Route: 048
  8. BUMEX [Concomitant]
     Active Substance: BUMETANIDE
     Indication: Hypertension
     Dosage: GIVE 1 TABLET BY MOUTH TAB ONE TIME A DAY EVERY MON, WED, FRI
     Route: 048
  9. BUMEX [Concomitant]
     Active Substance: BUMETANIDE
     Indication: Polyuria
     Dosage: GIVE 1 MG BY MOUTH IN THE MORNING FOR DIURETIC
     Route: 048
  10. DITROPAN XL [Concomitant]
     Active Substance: OXYBUTYNIN CHLORIDE
     Indication: Hypertonic bladder
     Dosage: GIVE 1 TABLET BY MOUTH ONE TIME A DAY
     Route: 048
  11. DORZOLAMIDE HYDROCHLORIDE\TIMOLOL MALEATE [Concomitant]
     Active Substance: DORZOLAMIDE HYDROCHLORIDE\TIMOLOL MALEATE
     Indication: Glaucoma
     Dosage: INSTILL 1 DROP IN LEFT EYE EVERY 12 HOURS
  12. FERROUS SULFATE [Concomitant]
     Active Substance: FERROUS SULFATE
     Indication: Iron deficiency
     Dosage: 325 (65 FE) MG: GIVE 1 TABLET BY MOUTH ONE TIME A DAY EVERY OTHER DAY FOR IRON DEFICIENCY
     Route: 048
  13. LATANOPROST [Concomitant]
     Active Substance: LATANOPROST
     Indication: Glaucoma
     Dosage: INSTILL 1 DROP IN BOTH EYES ONE TIME A DAY
     Route: 047
  14. LEVOTHYROXINE SODIUM [Concomitant]
     Active Substance: LEVOTHYROXINE SODIUM
     Indication: Hypothyroidism
     Dosage: GIVE 1 TABLET BY MOUTH ONE TIME A DAY
     Route: 048
  15. METOPROLOL TARTRATE [Concomitant]
     Active Substance: METOPROLOL TARTRATE
     Indication: Atrial fibrillation
     Dosage: GIVE 25 MG BY MOUTH THREE TIMES A DAY
     Route: 048
  16. TAFAMIDIS [Concomitant]
     Active Substance: TAFAMIDIS
     Indication: Cardiomyopathy
     Dosage: GIVE 1 CAPSULE BY MOUTH ONE TIME A DAY
     Route: 048
  17. VITAMIN D3 [Concomitant]
     Active Substance: CHOLECALCIFEROL
     Indication: Vitamin supplementation
     Dosage: GIVE 2500 MCG BY MOUTH ONE TIME A DAY
     Route: 048
  18. AFRIN [Concomitant]
     Active Substance: OXYMETAZOLINE
     Indication: Epistaxis
     Dosage: 4 SPRAY IN BOTH NOSTRILS EVERY 4 HOURS AS NEEDED
  19. ATORVASTATIN CALCIUM [Concomitant]
     Active Substance: ATORVASTATIN CALCIUM
     Indication: Hyperlipidaemia
     Dosage: GIVE 40 MG BY MOUTH AT BEDTIME
     Route: 048
  20. CHOLECALCIFEROL [Concomitant]
     Active Substance: CHOLECALCIFEROL
     Indication: Supplementation therapy
     Dosage: GIVE 62.5 MCG BY MOUTH ONE TIME A DAY FOR SUPPLEMENT
     Route: 048
  21. CLOPIDOGREL BISULFATE [Concomitant]
     Active Substance: CLOPIDOGREL BISULFATE
     Indication: Peripheral venous disease
     Dosage: GIVE 75 MG BY MOUTH ONE TIME A DAY
     Route: 048
  22. CYANOCOBALAMIN [Concomitant]
     Active Substance: CYANOCOBALAMIN
     Indication: Vitamin supplementation
     Dosage: GIVE 1 TABLET BY MOUTH ONE TIME A DAY EVERY MON, THU
  23. DOCUSATE SODIUM [Concomitant]
     Active Substance: DOCUSATE SODIUM
     Indication: Constipation
     Dosage: GIVE 100 MG BY MOUTH EVERY 12 HOURS AS NEEDED
     Route: 048
  24. DORZOLAMIDE HYDROCHLORIDE\TIMOLOL MALEATE [Concomitant]
     Active Substance: DORZOLAMIDE HYDROCHLORIDE\TIMOLOL MALEATE
     Dosage: INSTILL 1 DROP IN LEFT EYE EVERY 12 HOURS FOR OPHTHALMIC
     Route: 047
  25. MELATONIN [Concomitant]
     Active Substance: MELATONIN
     Indication: Sleep disorder
     Dosage: GIVE 1 TABLET BY MOUTH ONE TIME A DAY
     Route: 048
  26. METOPROLOL SUCCINATE [Concomitant]
     Active Substance: METOPROLOL SUCCINATE
     Indication: Atrial fibrillation
     Dosage: GIVE 1 TABLET BY MOUTH ONE TIME A DAY
     Route: 048
  27. OXYBUTYNIN CHLORIDE [Concomitant]
     Active Substance: OXYBUTYNIN CHLORIDE
     Dosage: GIVE 1 TABLET BY MOUTH ONE TIME A DAY FOR URINARY
     Route: 048
  28. PANTOPRAZOLE SODIUM [Concomitant]
     Active Substance: PANTOPRAZOLE SODIUM
     Indication: Ulcer
     Dosage: GIVE 1 TABLET BY MOUTH ONE TIME A DAY
  29. POLYETHYLENE GLYCOLS [Concomitant]
     Active Substance: POLYETHYLENE GLYCOLS
     Dosage: GIVE 17 GRAM BY MOUTH ONE TIME A DAY
     Route: 048
  30. SODIUM CHLORIDE [Concomitant]
     Active Substance: SODIUM CHLORIDE
     Indication: Epistaxis
     Dosage: 2 SPRAY IN BOTH NOSTRILS AS NEEDED
     Route: 045
  31. SODIUM CHLORIDE [Concomitant]
     Active Substance: SODIUM CHLORIDE
     Dosage: 2 SPRAY IN BOTH NOSTRILS THREE TIMES A DAY
     Route: 045

REACTIONS (2)
  - Myocardial infarction [Unknown]
  - Heart rate decreased [Unknown]

NARRATIVE: CASE EVENT DATE: 20231030
